FAERS Safety Report 17154086 (Version 1)
Quarter: 2019Q4

REPORT INFORMATION
  Report Type: Spontaneous
  Country: US (occurrence: US)
  Receive Date: 20191213
  Receipt Date: 20191213
  Transmission Date: 20200122
  Serious: No
  Sender: FDA-Public Use
  Company Number: US-ACTELION-A-US2019-198981

PATIENT
  Age: 44 Year
  Sex: Female
  Weight: 92.97 kg

DRUGS (3)
  1. SILDENAFIL CITRATE. [Concomitant]
     Active Substance: SILDENAFIL CITRATE
  2. WARFARIN [Concomitant]
     Active Substance: WARFARIN
  3. OPSUMIT [Suspect]
     Active Substance: MACITENTAN
     Indication: PULMONARY HYPERTENSION
     Dosage: 10 MG, QD
     Route: 048

REACTIONS (4)
  - Anaemia [Unknown]
  - Migraine [Unknown]
  - Tension headache [Unknown]
  - Blood pressure decreased [Unknown]

NARRATIVE: CASE EVENT DATE: 20191125
